FAERS Safety Report 6753851-2 (Version None)
Quarter: 2010Q2

REPORT INFORMATION
  Report Type: 
  Country: None (occurrence: None)
  Receive Date: 20100603
  Receipt Date: 20100521
  Transmission Date: 20101027
  Serious: Yes (Life-Threatening, Hospitalization, Other)
  Sender: FDA-Public Use
  Company Number: TW-ELI_LILLY_AND_COMPANY-TW201004003779

PATIENT
  Sex: Female
  Weight: 64.5 kg

DRUGS (7)
  1. PEMETREXED [Suspect]
     Indication: NON-SMALL CELL LUNG CANCER
     Dosage: 840 MG, UNK
     Route: 042
     Dates: start: 20100326
  2. CISPLATIN [Suspect]
     Indication: NON-SMALL CELL LUNG CANCER
     Dosage: 126 MG, UNK
     Route: 042
     Dates: start: 20100326
  3. MORPHINE [Concomitant]
     Indication: CHEST PAIN
     Dosage: 10 MG, 4/D
     Route: 048
     Dates: start: 20100325, end: 20100330
  4. AMLODIPINE /00972402/ [Concomitant]
     Indication: HYPERTENSION
     Dosage: 5 MG, 2/D
     Dates: start: 20100319, end: 20100330
  5. COZAAR [Concomitant]
     Indication: HYPERTENSION
     Dosage: 50 MG, DAILY (1/D)
     Dates: start: 20100312, end: 20100330
  6. ULTRACET [Concomitant]
     Indication: CHEST PAIN
     Dosage: 1 D/F, EVERY 8 HRS
     Dates: start: 20100312, end: 20100325
  7. ATENOLOL [Concomitant]
     Indication: HYPERTENSION
     Dosage: 50 MG, DAILY (1/D)
     Dates: start: 20100312, end: 20100330

REACTIONS (4)
  - HYPOVOLAEMIC SHOCK [None]
  - MALIGNANT PLEURAL EFFUSION [None]
  - RENAL FAILURE ACUTE [None]
  - SEPTIC SHOCK [None]
